FAERS Safety Report 19781613 (Version 1)
Quarter: 2021Q3

REPORT INFORMATION
  Report Type: Spontaneous
  Country: US (occurrence: US)
  Receive Date: 20210902
  Receipt Date: 20210902
  Transmission Date: 20211014
  Serious: No
  Sender: FDA-Public Use
  Company Number: US-MYLANLABS-2021M1051993

PATIENT
  Sex: Male

DRUGS (1)
  1. PRASUGREL TABLETS [Suspect]
     Active Substance: PRASUGREL
     Indication: ANTICOAGULANT THERAPY
     Dosage: 10 MILLIGRAM, QD
     Route: 048
     Dates: start: 20210811

REACTIONS (1)
  - Product storage error [Unknown]
